FAERS Safety Report 21609874 (Version 8)
Quarter: 2025Q4

REPORT INFORMATION
  Report Type: Spontaneous
  Country: IN (occurrence: IN)
  Receive Date: 20221117
  Receipt Date: 20251118
  Transmission Date: 20260118
  Serious: Yes (Hospitalization, Other)
  Sender: EMD SERONO INC
  Company Number: IN-Merck Healthcare KGaA-9365683

PATIENT
  Age: 61 Year
  Sex: Male
  Weight: 65 kg

DRUGS (21)
  1. BAVENCIO [Suspect]
     Active Substance: AVELUMAB
     Indication: Metastatic renal cell carcinoma
     Dosage: UNKNOWN
  2. BAVENCIO [Suspect]
     Active Substance: AVELUMAB
     Dosage: UNKNOWN
  3. BAVENCIO [Suspect]
     Active Substance: AVELUMAB
     Dosage: UNKNOWN
  4. BAVENCIO [Suspect]
     Active Substance: AVELUMAB
     Dosage: UNKNOWN
  5. BAVENCIO [Suspect]
     Active Substance: AVELUMAB
     Dosage: UNKNOWN
  6. BAVENCIO [Suspect]
     Active Substance: AVELUMAB
     Dosage: UNKNOWN
  7. BAVENCIO [Suspect]
     Active Substance: AVELUMAB
     Dosage: UNKNOWN
  8. BAVENCIO [Suspect]
     Active Substance: AVELUMAB
     Dates: start: 202201
  9. INLYTA [Suspect]
     Active Substance: AXITINIB
     Indication: Metastatic renal cell carcinoma
     Dosage: UNKNOWN
     Dates: start: 20220428
  10. INLYTA [Suspect]
     Active Substance: AXITINIB
     Dosage: UNKNOWN
  11. INLYTA [Suspect]
     Active Substance: AXITINIB
     Dosage: UNKNOWN
  12. INLYTA [Suspect]
     Active Substance: AXITINIB
     Dosage: UNKNOWN
  13. INLYTA [Suspect]
     Active Substance: AXITINIB
     Dosage: UNKNOWN
  14. INLYTA [Suspect]
     Active Substance: AXITINIB
     Dosage: UNKNOWN
  15. INLYTA [Suspect]
     Active Substance: AXITINIB
     Dosage: UNKNOWN
  16. INLYTA [Suspect]
     Active Substance: AXITINIB
     Dates: start: 20220127
  17. INLYTA [Suspect]
     Active Substance: AXITINIB
     Dosage: 5 MG 1-0-1 AND 1 MG 3-0-2 ON ALTERNATE DAYS X 4 MONTHS)
  18. INLYTA [Suspect]
     Active Substance: AXITINIB
  19. INLYTA [Suspect]
     Active Substance: AXITINIB
  20. INLYTA [Suspect]
     Active Substance: AXITINIB
     Dosage: 3-0-3 X 3 MONTHS
  21. INLYTA [Suspect]
     Active Substance: AXITINIB
     Dosage: 3-0-3 X 3 MONTHS

REACTIONS (8)
  - Throat irritation [Not Recovered/Not Resolved]
  - Gastrointestinal pain [Not Recovered/Not Resolved]
  - Ageusia [Not Recovered/Not Resolved]
  - Dyspepsia [Not Recovered/Not Resolved]
  - Diarrhoea [Not Recovered/Not Resolved]
  - Angioplasty [Unknown]
  - Aphonia [Unknown]
  - Skin exfoliation [Unknown]
